FAERS Safety Report 9208798 (Version 1)
Quarter: 2013Q2

REPORT INFORMATION
  Report Type: Spontaneous
  Country: US (occurrence: US)
  Receive Date: 20130404
  Receipt Date: 20130404
  Transmission Date: 20140414
  Serious: No
  Sender: FDA-Public Use
  Company Number: US-PFIZER INC-2013101852

PATIENT
  Age: 67 Year
  Sex: Male
  Weight: 99.77 kg

DRUGS (1)
  1. PROTONIX [Suspect]
     Indication: GASTROOESOPHAGEAL REFLUX DISEASE
     Dosage: 40 MG, TWO TIMES A DAY
     Dates: start: 20130324

REACTIONS (2)
  - Muscular weakness [Not Recovered/Not Resolved]
  - Muscle twitching [Not Recovered/Not Resolved]
